FAERS Safety Report 5143079-4 (Version None)
Quarter: 2006Q4

REPORT INFORMATION
  Report Type: 
  Country: None (occurrence: None)
  Receive Date: 20061103
  Receipt Date: 20061023
  Transmission Date: 20070319
  Serious: Yes (Other)
  Sender: FDA-Public Use
  Company Number: PHMT2006CA02010

PATIENT
  Sex: Female

DRUGS (2)
  1. PAMIDRONATE DISODIUM [Suspect]
     Indication: MULTIPLE MYELOMA
  2. ZOMETA [Suspect]
     Indication: MULTIPLE MYELOMA
     Dosage: 4 MG EVERY MONTH
     Route: 042
     Dates: start: 20050401, end: 20060901

REACTIONS (12)
  - ANOREXIA [None]
  - BLOOD CREATININE INCREASED [None]
  - FACE AND MOUTH X-RAY [None]
  - GINGIVAL DISORDER [None]
  - IMPAIRED HEALING [None]
  - INCOHERENT [None]
  - MALAISE [None]
  - NAUSEA [None]
  - TOOTH DISORDER [None]
  - TOOTH EXTRACTION [None]
  - TOOTHACHE [None]
  - WEIGHT DECREASED [None]
